FAERS Safety Report 7731828-8 (Version None)
Quarter: 2011Q3

REPORT INFORMATION
  Report Type: 
  Country: None (occurrence: None)
  Receive Date: 20110906
  Receipt Date: 20110708
  Transmission Date: 20111222
  Serious: Yes (Other)
  Sender: FDA-Public Use
  Company Number: US-AMGEN-USASP2011029790

PATIENT
  Age: 79 Year
  Sex: Female
  Weight: 104 kg

DRUGS (13)
  1. MOBIC [Concomitant]
     Dosage: UNK
  2. DULCOLAX [Concomitant]
     Dosage: UNK
  3. LYRICA [Concomitant]
     Dosage: UNK
  4. XGEVA [Suspect]
     Indication: METASTASES TO BONE
     Dosage: 120 MG, Q4WK
     Route: 058
     Dates: start: 20110425
  5. GLUCOPHAGE [Concomitant]
     Dosage: UNK
  6. REQUIP [Concomitant]
     Dosage: UNK
  7. CELEXA [Concomitant]
     Dosage: UNK
  8. DETROL LA [Concomitant]
     Dosage: UNK
  9. LASIX [Concomitant]
     Dosage: UNK
  10. AROMASIN [Concomitant]
     Dosage: UNK
  11. LIPITOR [Concomitant]
     Dosage: UNK
  12. NORVASC [Concomitant]
     Dosage: UNK
  13. MUCOMYST [Concomitant]
     Dosage: UNK

REACTIONS (2)
  - HYPOCALCAEMIA [None]
  - NAUSEA [None]
